FAERS Safety Report 9670253 (Version 1)
Quarter: 2013Q4

REPORT INFORMATION
  Report Type: Report from Study
  Country: US (occurrence: US)
  Receive Date: 20131105
  Receipt Date: 20131105
  Transmission Date: 20140711
  Serious: Yes (Hospitalization)
  Sender: FDA-Public Use
  Company Number: US-TAKEDA-2013MPI000792

PATIENT
  Age: 53 Year
  Sex: Male

DRUGS (10)
  1. HUMALOG [Concomitant]
     Indication: DIABETES MELLITUS
  2. VELCADE [Suspect]
     Indication: MANTLE CELL LYMPHOMA
  3. CYCLOPHOSPHAMIDE [Suspect]
     Indication: MANTLE CELL LYMPHOMA
  4. VINCRISTINE [Suspect]
     Indication: MANTLE CELL LYMPHOMA
  5. DOXORUBICIN [Suspect]
     Indication: MANTLE CELL LYMPHOMA
  6. DEXAMETHASONE [Suspect]
     Indication: MANTLE CELL LYMPHOMA
  7. RITUXIMAB [Suspect]
     Indication: MANTLE CELL LYMPHOMA
  8. METHOTREXATE [Suspect]
     Indication: MANTLE CELL LYMPHOMA
  9. CYTARABINE [Suspect]
     Indication: MANTLE CELL LYMPHOMA
  10. METFORMIN [Concomitant]

REACTIONS (1)
  - Chest wall abscess [Unknown]
